FAERS Safety Report 6347161-5 (Version None)
Quarter: 2009Q3

REPORT INFORMATION
  Report Type: 
  Country: None (occurrence: None)
  Receive Date: 20090910
  Receipt Date: 20090827
  Transmission Date: 20100115
  Serious: Yes (Hospitalization)
  Sender: FDA-Public Use
  Company Number: US-ROCHE-653224

PATIENT
  Sex: Male

DRUGS (2)
  1. PEGASYS [Suspect]
     Indication: HEPATITIS C
     Route: 065
     Dates: start: 20070101, end: 20070101
  2. COPEGUS [Suspect]
     Indication: HEPATITIS C
     Dosage: DOSAGE: 1200 MG OR 1400 MG DAILY
     Route: 065
     Dates: start: 20070101, end: 20070101

REACTIONS (3)
  - HAEMATEMESIS [None]
  - INFECTION [None]
  - VARICES OESOPHAGEAL [None]
